FAERS Safety Report 8887979 (Version 1)
Quarter: 2012Q4

REPORT INFORMATION
  Report Type: 
  Country: FR (occurrence: FR)
  Receive Date: 20121106
  Receipt Date: 20121106
  Transmission Date: 20130627
  Serious: Yes (Hospitalization)
  Sender: FDA-Public Use
  Company Number: FR-MERCK-1210FRA014025

PATIENT
  Age: 71 Year
  Sex: Female

DRUGS (1)
  1. ORGARAN [Suspect]
     Indication: PRODUCT USED FOR UNKNOWN INDICATION
     Dosage: UNK
     Dates: start: 20120406, end: 20120412

REACTIONS (1)
  - Thrombocytopenia [Recovered/Resolved]
